FAERS Safety Report 7249743-5 (Version None)
Quarter: 2011Q1

REPORT INFORMATION
  Report Type: 
  Country: None (occurrence: None)
  Receive Date: 20110128
  Receipt Date: 20091208
  Transmission Date: 20110831
  Serious: No
  Sender: FDA-Public Use
  Company Number: A0834872A

PATIENT
  Sex: Male

DRUGS (8)
  1. XANAX [Concomitant]
  2. OXYCONTIN [Concomitant]
  3. WELLBUTRIN [Suspect]
     Indication: DEPRESSION
  4. METHADONE [Concomitant]
  5. RIBAVIRIN [Concomitant]
  6. NITROGLYCERIN [Concomitant]
  7. PEG-INTRON [Concomitant]
  8. CITALOPRAM [Concomitant]

REACTIONS (5)
  - TREATMENT NONCOMPLIANCE [None]
  - AGITATION [None]
  - UPPER RESPIRATORY TRACT INFECTION [None]
  - COUGH [None]
  - ILL-DEFINED DISORDER [None]
